FAERS Safety Report 6813060-5 (Version None)
Quarter: 2010Q3

REPORT INFORMATION
  Report Type: 
  Country: None (occurrence: None)
  Receive Date: 20100701
  Receipt Date: 20100629
  Transmission Date: 20110219
  Serious: Yes (Death, Other)
  Sender: FDA-Public Use
  Company Number: US-CELGENEUS-163-20785-10061872

PATIENT
  Sex: Male

DRUGS (4)
  1. THALOMID [Suspect]
     Route: 048
     Dates: start: 20100504, end: 20100601
  2. DAPSONE [Concomitant]
     Indication: LEPROSY
     Route: 065
  3. BIAXIN [Concomitant]
     Indication: LEPROSY
     Route: 065
  4. COUMADIN [Concomitant]
     Indication: PRODUCT USED FOR UNKNOWN INDICATION
     Route: 065

REACTIONS (5)
  - CEREBRAL HAEMORRHAGE [None]
  - DEEP VEIN THROMBOSIS [None]
  - LIVER FUNCTION TEST ABNORMAL [None]
  - PROTHROMBIN TIME PROLONGED [None]
  - PULMONARY EMBOLISM [None]
